FAERS Safety Report 24413174 (Version 1)
Quarter: 2024Q4

REPORT INFORMATION
  Report Type: Spontaneous
  Country: US (occurrence: US)
  Receive Date: 20241008
  Receipt Date: 20241008
  Transmission Date: 20250115
  Serious: No
  Sender: SANOFI AVENTIS
  Company Number: US-SA-2024SA287182

PATIENT
  Age: 46 Year
  Sex: Female
  Weight: 105.22 kg

DRUGS (1)
  1. DUPIXENT [Suspect]
     Active Substance: DUPILUMAB
     Indication: Illness
     Dosage: 300 MG, QOW
     Route: 058

REACTIONS (4)
  - Injection site pain [Unknown]
  - Injection site discolouration [Unknown]
  - Injection site swelling [Unknown]
  - Product preparation error [Unknown]

NARRATIVE: CASE EVENT DATE: 20240924
